FAERS Safety Report 10358548 (Version 1)
Quarter: 2014Q3

REPORT INFORMATION
  Report Type: Spontaneous
  Country: US (occurrence: US)
  Receive Date: 20140802
  Receipt Date: 20140802
  Transmission Date: 20150326
  Serious: Yes (Hospitalization)
  Sender: FDA-Public Use
  Company Number: US-AMGEN-USASP2014056822

PATIENT
  Age: 81 Year
  Sex: Female

DRUGS (1)
  1. SENSIPAR [Suspect]
     Active Substance: CINACALCET HYDROCHLORIDE
     Indication: HYPERPARATHYROIDISM SECONDARY
     Dosage: 30 MG, 3 TIMES/WK
     Route: 065

REACTIONS (4)
  - Hip arthroplasty [Recovering/Resolving]
  - Infection [Unknown]
  - Arthritis [Unknown]
  - Pain [Unknown]
